FAERS Safety Report 23358322 (Version 1)
Quarter: 2024Q1

REPORT INFORMATION
  Report Type: Report from Study
  Country: US (occurrence: US)
  Receive Date: 20240102
  Receipt Date: 20240102
  Transmission Date: 20240410
  Serious: Yes (Other)
  Sender: FDA-Public Use
  Company Number: US-ABBVIE-5465810

PATIENT
  Age: 48 Year
  Sex: Female
  Weight: 51.709 kg

DRUGS (5)
  1. HUMIRA [Suspect]
     Active Substance: ADALIMUMAB
     Indication: Ankylosing spondylitis
     Dosage: FORM STRENGTH- 40 MG
     Route: 058
     Dates: start: 20221104
  2. HUMIRA [Suspect]
     Active Substance: ADALIMUMAB
     Dosage: STRENGTH- 40 MG ?LAST ADMIN DATE-NOV 2022
     Route: 058
     Dates: start: 20221103
  3. SYNTHROID [Concomitant]
     Active Substance: LEVOTHYROXINE SODIUM
     Indication: Thyroid disorder
  4. EMGALITY [Concomitant]
     Active Substance: GALCANEZUMAB-GNLM
     Indication: Migraine
  5. CYTOMEL [Concomitant]
     Active Substance: LIOTHYRONINE SODIUM
     Indication: Thyroid disorder

REACTIONS (2)
  - Stress fracture [Not Recovered/Not Resolved]
  - Pain [Not Recovered/Not Resolved]

NARRATIVE: CASE EVENT DATE: 20230801
